FAERS Safety Report 15114750 (Version 1)
Quarter: 2018Q3

REPORT INFORMATION
  Report Type: Spontaneous
  Country: US (occurrence: US)
  Receive Date: 20180706
  Receipt Date: 20180706
  Transmission Date: 20181010
  Serious: No
  Sender: FDA-Public Use
  Company Number: US-IPSEN BIOPHARMACEUTICALS, INC.-2018-09503

PATIENT
  Age: 30 Year
  Sex: Male

DRUGS (5)
  1. IBUPROFEN. [Concomitant]
     Active Substance: IBUPROFEN
  2. SOMATULINE DEPOT [Suspect]
     Active Substance: LANREOTIDE ACETATE
     Indication: PITUITARY TUMOUR BENIGN
     Dosage: 90 MG
     Route: 058
     Dates: start: 20160310
  3. CABERGOLINE. [Concomitant]
     Active Substance: CABERGOLINE
  4. HYDROCHLOROT [Concomitant]
     Active Substance: HYDROCHLOROTHIAZIDE
  5. SOMATULINE DEPOT [Suspect]
     Active Substance: LANREOTIDE ACETATE
     Indication: OFF LABEL USE

REACTIONS (3)
  - Off label use [Unknown]
  - Injection site pain [Unknown]
  - Injection site induration [Unknown]

NARRATIVE: CASE EVENT DATE: 201806
